FAERS Safety Report 5263147-6 (Version None)
Quarter: 2007Q1

REPORT INFORMATION
  Report Type: 
  Country: None (occurrence: None)
  Receive Date: 20070312
  Receipt Date: 20070228
  Transmission Date: 20070707
  Serious: Yes (Death)
  Sender: FDA-Public Use
  Company Number: FR-PFIZER INC-2007016039

PATIENT
  Age: 87 Year
  Sex: Male

DRUGS (8)
  1. TRIFLUCAN [Suspect]
     Route: 048
     Dates: start: 20070109, end: 20070124
  2. PREVISCAN [Interacting]
     Route: 048
     Dates: start: 19960101, end: 20070118
  3. LANSOPRAZOLE [Concomitant]
  4. MACROGOL [Concomitant]
  5. ZOPICLONE [Concomitant]
  6. FUROSEMIDE [Concomitant]
  7. GLIBENCLAMIDE [Concomitant]
  8. PREDNISONE [Concomitant]

REACTIONS (1)
  - HAEMOTHORAX [None]
